FAERS Safety Report 5810750-8 (Version None)
Quarter: 2008Q3

REPORT INFORMATION
  Report Type: 
  Country: None (occurrence: None)
  Receive Date: 20080715
  Receipt Date: 20080710
  Transmission Date: 20090109
  Serious: Yes (Hospitalization)
  Sender: FDA-Public Use
  Company Number: IT-MERCK-0807ITA00016

PATIENT
  Age: 70 Year
  Sex: Female

DRUGS (5)
  1. SINGULAIR [Suspect]
     Indication: ASTHMA
     Route: 048
     Dates: start: 20050101, end: 20080410
  2. LEVOFLOXACIN [Suspect]
     Route: 048
     Dates: start: 20080407, end: 20080410
  3. CEFTRIAXONE SODIUM [Suspect]
     Route: 048
     Dates: start: 20080401, end: 20080410
  4. TIOTROPIUM BROMIDE [Concomitant]
     Route: 065
  5. FLUTICASONE PROPIONATE AND SALMETEROL XINAFOATE [Concomitant]
     Route: 065

REACTIONS (4)
  - ALLERGIC GRANULOMATOUS ANGIITIS [None]
  - ASTHMA [None]
  - EOSINOPHILIA [None]
  - POLYNEUROPATHY [None]
